FAERS Safety Report 8238168-1 (Version None)
Quarter: 2012Q1

REPORT INFORMATION
  Report Type: 
  Country: None (occurrence: None)
  Receive Date: 20120327
  Receipt Date: 20120314
  Transmission Date: 20120608
  Serious: Yes (Other)
  Sender: FDA-Public Use
  Company Number: US-ROCHE-1052837

PATIENT
  Sex: Female

DRUGS (4)
  1. RECLAST [Suspect]
     Indication: OSTEOPOROSIS
     Dates: start: 19990801, end: 20101201
  2. BONIVA [Suspect]
     Indication: OSTEOPOROSIS
     Dates: start: 19990801, end: 20101201
  3. FOSAMAX [Suspect]
     Indication: OSTEOPOROSIS
     Dates: start: 19990801, end: 20101201
  4. ZOMETA [Suspect]
     Indication: OSTEOPOROSIS
     Dates: start: 19990801, end: 20101201

REACTIONS (2)
  - FEMUR FRACTURE [None]
  - EMOTIONAL DISTRESS [None]
